FAERS Safety Report 21270926 (Version 2)
Quarter: 2022Q3

REPORT INFORMATION
  Report Type: Spontaneous
  Country: US (occurrence: US)
  Receive Date: 20220830
  Receipt Date: 20220922
  Transmission Date: 20221027
  Serious: No
  Sender: FDA-Public Use
  Company Number: Athena-United States-02698994

PATIENT
  Age: 76 Year
  Sex: Female

DRUGS (2)
  1. REVLIMID [Suspect]
     Active Substance: LENALIDOMIDE
     Indication: Plasma cell myeloma
     Route: 048
     Dates: start: 202011
  2. REVLIMID [Suspect]
     Active Substance: LENALIDOMIDE
     Dosage: 1 CAPSULE BY MOUTH EVERY DAY
     Route: 048
     Dates: start: 20220824

REACTIONS (4)
  - Pain [Unknown]
  - Product dose omission issue [Unknown]
  - Headache [Unknown]
  - Skin discolouration [Recovered/Resolved]
